FAERS Safety Report 7871393 (Version 2)
Quarter: 2012Q4

REPORT INFORMATION
  Report Type: 
  Country: US (occurrence: US)
  Receive Date: 20110325
  Receipt Date: 20121012
  Transmission Date: 20130627
  Serious: Yes (Death)
  Sender: FDA-Public Use
  Company Number: US-MYLANLABS-2010S1006231

PATIENT
  Age: 57 Year
  Sex: Female
  Weight: 68.04 kg

DRUGS (21)
  1. FENTANYL TRANSDERMAL SYSTEM [Suspect]
     Indication: PAIN
     Dosage: q 72
     Route: 062
     Dates: end: 20080305
  2. LORAZEPAM [Suspect]
  3. HYDROCODONE BITARTRATE AND IBUPROFEN [Suspect]
  4. ZOLPIDEM [Concomitant]
  5. CYCLOBENZAPRINE [Concomitant]
  6. CITALOPRAM [Concomitant]
  7. AMBI 40/1000/60 [Concomitant]
     Dosage: 40mg/1000mg/60mg
  8. AVINZA [Concomitant]
  9. CIPROFLOXACIN [Concomitant]
  10. MECLIZINE [Concomitant]
  11. LYRICA [Concomitant]
  12. SIMVASTATIN [Concomitant]
  13. METOPROLOL [Concomitant]
  14. VALTREX [Concomitant]
  15. BONIVA [Concomitant]
  16. IBUPROFEN [Concomitant]
  17. ZOVIRAX [Concomitant]
  18. PREDNISONE [Concomitant]
  19. FLUCONAZOLE [Concomitant]
  20. HYDROCHLOROTHIAZIDE [Concomitant]
  21. MORPHINE [Concomitant]

REACTIONS (3)
  - Toxicity to various agents [Fatal]
  - Arrhythmia [Fatal]
  - Overdose [Fatal]
